FAERS Safety Report 25772842 (Version 2)
Quarter: 2025Q4

REPORT INFORMATION
  Report Type: Spontaneous
  Country: US (occurrence: US)
  Receive Date: 20250908
  Receipt Date: 20251017
  Transmission Date: 20260118
  Serious: Yes (Other)
  Sender: AUROBINDO
  Company Number: US-MLMSERVICE-20250818-PI616558-00152-4

PATIENT
  Age: 57 Year
  Sex: Male
  Weight: 84.8 kg

DRUGS (3)
  1. FLUOROURACIL [Suspect]
     Active Substance: FLUOROURACIL
     Indication: Rectosigmoid cancer stage III
     Dosage: 1200 MG/M2, ONCE A DAY (3 CYCLES; 5000 MG OVER 48 HOURS (1200 MG/M2/DAY))
     Route: 042
  2. OXALIPLATIN [Concomitant]
     Active Substance: OXALIPLATIN
     Indication: Rectosigmoid cancer stage III
     Dosage: UNK UNK, CYCLICAL (3 CYCLES FOLLOWED BY INPATIENT 3 CYCLES?OP)
     Route: 065
  3. LEUCOVORIN [Concomitant]
     Active Substance: LEUCOVORIN\LEUCOVORIN CALCIUM
     Indication: Rectosigmoid cancer stage III
     Dosage: UNK UNK, CYCLICAL (3 CYCLES FOLLOWED BY INPATIENT 3 CYCLES?OP )
     Route: 065

REACTIONS (1)
  - Arteriospasm coronary [Recovered/Resolved]
